FAERS Safety Report 21952674 (Version 3)
Quarter: 2023Q1

REPORT INFORMATION
  Report Type: Report from Study
  Country: FR (occurrence: FR)
  Receive Date: 20230203
  Receipt Date: 20230327
  Transmission Date: 20230418
  Serious: Yes (Hospitalization)
  Sender: FDA-Public Use
  Company Number: FR-TAIHO-2023-000672

PATIENT
  Age: 66 Year
  Sex: Male
  Weight: 94 kg

DRUGS (6)
  1. FUTIBATINIB [Suspect]
     Active Substance: FUTIBATINIB
     Indication: Transitional cell carcinoma
     Dosage: CYCLE 1-2
     Route: 048
     Dates: start: 20230105
  2. PEMBROLIZUMAB [Suspect]
     Active Substance: PEMBROLIZUMAB
     Indication: Transitional cell carcinoma
     Dosage: CYCLE 1-2?DAILY DOSE: 200 MILLIGRAM(S)
     Route: 042
     Dates: start: 20230105
  3. NEURONTIN [Concomitant]
     Active Substance: GABAPENTIN
     Indication: Pain
     Route: 048
     Dates: start: 202301
  4. TAHOR [Concomitant]
     Active Substance: ATORVASTATIN CALCIUM
     Indication: Myocardial infarction
     Route: 048
     Dates: start: 20221201
  5. ASPIRIN [Concomitant]
     Active Substance: ASPIRIN
     Indication: Pain
     Route: 048
     Dates: start: 20221201
  6. ACEBUTOLOL [Concomitant]
     Active Substance: ACEBUTOLOL
     Indication: Myocardial infarction
     Route: 048
     Dates: start: 20221201

REACTIONS (1)
  - Haematuria [Recovered/Resolved]

NARRATIVE: CASE EVENT DATE: 20230128
